FAERS Safety Report 20756058 (Version 1)
Quarter: 2022Q2

REPORT INFORMATION
  Report Type: Spontaneous
  Country: US (occurrence: None)
  Receive Date: 20220426
  Receipt Date: 20220426
  Transmission Date: 20220720
  Serious: Yes (Death)
  Sender: FDA-Public Use
  Company Number: None

PATIENT
  Age: 72 Year
  Sex: Male

DRUGS (8)
  1. INLYTA [Suspect]
     Active Substance: AXITINIB
     Indication: Renal cancer
     Dosage: FREQUENCY : TWICE A DAY;, TAKE 3 TABS?
     Route: 048
     Dates: start: 202107, end: 202203
  2. ASPIRIN [Concomitant]
     Active Substance: ASPIRIN
  3. ZETIA [Concomitant]
  4. MTV [Concomitant]
  5. ACYCLOVIR [Concomitant]
     Active Substance: ACYCLOVIR
  6. GLYBURDIE [Concomitant]
  7. PLAVIX [Concomitant]
  8. HYDROCORTISONE [Concomitant]

REACTIONS (1)
  - Death [None]

NARRATIVE: CASE EVENT DATE: 20220415
